FAERS Safety Report 7436181-5 (Version None)
Quarter: 2011Q2

REPORT INFORMATION
  Report Type: 
  Country: None (occurrence: None)
  Receive Date: 20110425
  Receipt Date: 20110415
  Transmission Date: 20111010
  Serious: Yes (Other)
  Sender: FDA-Public Use
  Company Number: GB-MERCK-1104GBR00077

PATIENT
  Age: 63 Year
  Sex: Male

DRUGS (3)
  1. ZOCOR [Suspect]
     Indication: TRANSIENT ISCHAEMIC ATTACK
     Route: 048
  2. ZOCOR [Suspect]
     Indication: PROPHYLAXIS
     Route: 048
  3. ASPIRIN AND DIPYRIDAMOLE [Concomitant]
     Route: 065

REACTIONS (1)
  - TENDON RUPTURE [None]
